FAERS Safety Report 24035863 (Version 6)
Quarter: 2024Q4

REPORT INFORMATION
  Report Type: Report from Study
  Country: US (occurrence: US)
  Receive Date: 20240701
  Receipt Date: 20241216
  Transmission Date: 20250115
  Serious: Yes (Other)
  Sender: NOVARTIS
  Company Number: US-002147023-NVSC2024US131945

PATIENT
  Age: 51 Year
  Sex: Female

DRUGS (1)
  1. COSENTYX [Suspect]
     Active Substance: SECUKINUMAB
     Indication: Product used for unknown indication
     Dosage: 300 MG, QW
     Route: 058
     Dates: start: 20240614

REACTIONS (11)
  - Psoriatic arthropathy [Unknown]
  - Injection site pruritus [Unknown]
  - Chapped lips [Unknown]
  - Malaise [Unknown]
  - Pruritus [Unknown]
  - Skin disorder [Unknown]
  - Injection site urticaria [Unknown]
  - Urticaria [Unknown]
  - Psoriasis [Unknown]
  - Injection site erythema [Unknown]
  - Irritability [Unknown]

NARRATIVE: CASE EVENT DATE: 20240614
